FAERS Safety Report 4437265-6 (Version None)
Quarter: 2004Q3

REPORT INFORMATION
  Report Type: 
  Country: None (occurrence: None)
  Receive Date: 20040728
  Receipt Date: 20040624
  Transmission Date: 20050211
  Serious: No
  Sender: FDA-Public Use
  Company Number: WAES 0406USA02364

PATIENT
  Age: 56 Year
  Sex: Female

DRUGS (6)
  1. EMEND [Suspect]
     Indication: NAUSEA
     Dosage: SEE IMAGE
     Route: 048
     Dates: start: 20040603, end: 20040603
  2. EMEND [Suspect]
     Indication: VOMITING
     Dosage: SEE IMAGE
     Route: 048
     Dates: start: 20040603, end: 20040603
  3. EMEND [Suspect]
     Indication: NAUSEA
     Dosage: SEE IMAGE
     Route: 048
     Dates: start: 20040604, end: 20040605
  4. EMEND [Suspect]
     Indication: VOMITING
     Dosage: SEE IMAGE
     Route: 048
     Dates: start: 20040604, end: 20040605
  5. CISPLATIN [Concomitant]
  6. FLUOROURACIL [Concomitant]

REACTIONS (1)
  - DYSPHAGIA [None]
